FAERS Safety Report 11402112 (Version 1)
Quarter: 2015Q3

REPORT INFORMATION
  Report Type: Spontaneous
  Country: US (occurrence: US)
  Receive Date: 20150821
  Receipt Date: 20150821
  Transmission Date: 20151125
  Serious: No
  Sender: FDA-Public Use
  Company Number: US-ROCHE-1331707

PATIENT
  Sex: Male

DRUGS (4)
  1. RIBAVIRIN. [Suspect]
     Active Substance: RIBAVIRIN
     Indication: HEPATITIS C
     Dosage: PILL
     Route: 048
  2. PEGASYS [Suspect]
     Active Substance: PEGINTERFERON ALFA-2A
     Indication: LIVER INJURY
  3. PEGASYS [Suspect]
     Active Substance: PEGINTERFERON ALFA-2A
     Indication: HEPATITIS C
     Route: 058
     Dates: start: 201309
  4. RIBAVIRIN. [Suspect]
     Active Substance: RIBAVIRIN
     Indication: LIVER INJURY

REACTIONS (8)
  - Malaise [Unknown]
  - Painful defaecation [Unknown]
  - Discomfort [Unknown]
  - Anaemia [Unknown]
  - Anorectal disorder [Unknown]
  - Incorrect product storage [Unknown]
  - Fatigue [Unknown]
  - Diarrhoea [Unknown]
